FAERS Safety Report 18133292 (Version 4)
Quarter: 2024Q4

REPORT INFORMATION
  Report Type: Spontaneous
  Country: GB (occurrence: GB)
  Receive Date: 20200811
  Receipt Date: 20241026
  Transmission Date: 20250115
  Serious: Yes (Hospitalization, Other)
  Sender: AUROBINDO
  Company Number: GB-MLMSERVICE-20200729-2408364-1

PATIENT
  Age: 47 Year
  Sex: Female
  Weight: 83 kg

DRUGS (6)
  1. LOSARTAN [Interacting]
     Active Substance: LOSARTAN
     Indication: Hypertension
     Dosage: UNK
     Route: 065
     Dates: start: 2014
  2. CALCIUM CARBONATE [Interacting]
     Active Substance: CALCIUM CARBONATE
     Indication: Dyspepsia
     Dosage: 4500 MILLIGRAM, ONCE A DAY
     Route: 048
  3. CALCIUM CARBONATE [Interacting]
     Active Substance: CALCIUM CARBONATE
     Dosage: 9 DOSAGE FORM, ONCE A DAY
     Route: 048
     Dates: start: 2017
  4. SIMVASTATIN [Concomitant]
     Active Substance: SIMVASTATIN
     Indication: Product used for unknown indication
     Dosage: UNK
     Route: 065
  5. BUPRENORPHINE [Concomitant]
     Active Substance: BUPRENORPHINE
     Indication: Analgesic therapy
     Dosage: UNK
     Route: 062
  6. ACETAMINOPHEN [Concomitant]
     Active Substance: ACETAMINOPHEN
     Indication: Product used for unknown indication
     Dosage: UNK
     Route: 065

REACTIONS (11)
  - Nephrolithiasis [Unknown]
  - Milk-alkali syndrome [Recovered/Resolved]
  - Vitamin D deficiency [Recovered/Resolved]
  - Hypercalcaemia [Recovered/Resolved]
  - Condition aggravated [Recovered/Resolved]
  - Renal impairment [Recovered/Resolved]
  - Drug interaction [Recovered/Resolved]
  - Prescription drug used without a prescription [Recovered/Resolved]
  - Intentional overdose [Recovered/Resolved]
  - Incorrect dose administered [Recovered/Resolved]
  - Product use in unapproved indication [Recovered/Resolved]

NARRATIVE: CASE EVENT DATE: 20190101
